FAERS Safety Report 5328693-5 (Version None)
Quarter: 2007Q2

REPORT INFORMATION
  Report Type: 
  Country: None (occurrence: None)
  Receive Date: 20070518
  Receipt Date: 20070510
  Transmission Date: 20071010
  Serious: Yes (Hospitalization)
  Sender: FDA-Public Use
  Company Number: B0470692A

PATIENT
  Age: 59 Year
  Sex: Male
  Weight: 75 kg

DRUGS (5)
  1. ALKERAN [Suspect]
     Route: 042
     Dates: start: 20070113, end: 20070117
  2. CORTANCYL [Suspect]
     Route: 065
     Dates: start: 20070113, end: 20070117
  3. SKENAN [Concomitant]
  4. HEPARIN SODIUM [Concomitant]
  5. ACTISKENAN [Concomitant]

REACTIONS (5)
  - ACIDOSIS [None]
  - GENERAL PHYSICAL HEALTH DETERIORATION [None]
  - RENAL DISORDER [None]
  - RENAL FAILURE ACUTE [None]
  - VOMITING [None]
